FAERS Safety Report 25076705 (Version 1)
Quarter: 2025Q1

REPORT INFORMATION
  Report Type: Spontaneous
  Country: FR (occurrence: FR)
  Receive Date: 20250313
  Receipt Date: 20250313
  Transmission Date: 20250409
  Serious: Yes (Other)
  Sender: MERCK KGAA
  Company Number: FR-Merck Healthcare KGaA-2025011186

PATIENT
  Age: 63 Year
  Sex: Female
  Weight: 74 kg

DRUGS (2)
  1. LEVOTHYROXINE [Suspect]
     Active Substance: LEVOTHYROXINE
     Indication: Product used for unknown indication
  2. IODINE [Concomitant]
     Active Substance: IODINE
     Indication: Product used for unknown indication

REACTIONS (29)
  - Diabetes mellitus [Unknown]
  - Gastrointestinal fungal infection [Unknown]
  - Blood zinc decreased [Recovering/Resolving]
  - Blood iron decreased [Recovering/Resolving]
  - Hypercholesterolaemia [Recovering/Resolving]
  - Fatty acid deficiency [Recovering/Resolving]
  - Vitamin D deficiency [Recovering/Resolving]
  - Ubiquinone decreased [Recovering/Resolving]
  - Laboratory test abnormal [Recovering/Resolving]
  - Selenium deficiency [Recovering/Resolving]
  - Glutathione decreased [Recovering/Resolving]
  - Vitamin E deficiency [Recovering/Resolving]
  - Vitamin A deficiency [Recovering/Resolving]
  - Hyperinsulinism [Recovering/Resolving]
  - Affective disorder [Unknown]
  - Autoantibody positive [Recovering/Resolving]
  - Vitamin K deficiency [Recovering/Resolving]
  - Iodine deficiency [Recovering/Resolving]
  - Folate deficiency [Recovering/Resolving]
  - Vitamin B12 deficiency [Recovering/Resolving]
  - Weight increased [Recovering/Resolving]
  - Vitamin B6 increased [Recovered/Resolved]
  - Blood thyroid stimulating hormone increased [Recovering/Resolving]
  - Hypometabolism [Unknown]
  - Blood magnesium abnormal [Recovering/Resolving]
  - Inflammation [Unknown]
  - Arthralgia [Recovered/Resolved]
  - Fatigue [Recovered/Resolved]
  - Blood homocysteine increased [Recovering/Resolving]
